FAERS Safety Report 9542237 (Version 1)
Quarter: 2013Q3

REPORT INFORMATION
  Report Type: Spontaneous
  Country: IN (occurrence: None)
  Receive Date: 20130918
  Receipt Date: 20130918
  Transmission Date: 20140515
  Serious: Yes (Other)
  Sender: FDA-Public Use
  Company Number: CO-OR-IN-2013-059

PATIENT
  Sex: 0

DRUGS (1)
  1. PREDNISOLONE (PREDNISOLONE) [Suspect]
     Indication: NEPHROTIC SYNDROME

REACTIONS (1)
  - Toxicity to various agents [None]
